FAERS Safety Report 21083518 (Version 2)
Quarter: 2022Q3

REPORT INFORMATION
  Report Type: Spontaneous
  Country: US (occurrence: US)
  Receive Date: 20220714
  Receipt Date: 20220729
  Transmission Date: 20221027
  Serious: Yes (Other)
  Sender: FDA-Public Use
  Company Number: US-TEVA-2022-US-2053936

PATIENT
  Age: 2 Year
  Sex: Male

DRUGS (4)
  1. PREDNISOLONE [Suspect]
     Active Substance: PREDNISOLONE
     Indication: Congenital aplastic anaemia
     Dosage: HIGH DOSE
     Route: 065
  2. DEFERASIROX [Concomitant]
     Active Substance: DEFERASIROX
     Indication: Iron overload
     Route: 065
  3. ZONISAMIDE [Concomitant]
     Active Substance: ZONISAMIDE
     Indication: Generalised tonic-clonic seizure
     Route: 065
  4. LEVETIRACETAM [Concomitant]
     Active Substance: LEVETIRACETAM
     Indication: Generalised tonic-clonic seizure
     Route: 065

REACTIONS (7)
  - Growth hormone deficiency [Unknown]
  - Secondary adrenocortical insufficiency [Unknown]
  - Primary hypothyroidism [Unknown]
  - Hypoparathyroidism [Unknown]
  - Drug ineffective [Unknown]
  - Spinal compression fracture [Unknown]
  - Osteopenia [Unknown]
